FAERS Safety Report 6495631-1 (Version None)
Quarter: 2009Q4

REPORT INFORMATION
  Report Type: 
  Country: None (occurrence: None)
  Receive Date: 20091214
  Receipt Date: 20090727
  Transmission Date: 20100525
  Serious: No
  Sender: FDA-Public Use
  Company Number: US-BRISTOL-MYERS SQUIBB COMPANY-14716146

PATIENT
  Age: 59 Year
  Sex: Male
  Weight: 75 kg

DRUGS (6)
  1. ABILIFY [Suspect]
     Indication: DEPRESSION
     Dosage: INITIALLY 2MG FOR 7DAYS;THEN INCREASED TO 5MG FOR 4DAYS;STOPPED APPROXIMATELY ON 22JUL09
     Route: 048
     Dates: start: 20090713, end: 20090701
  2. OXYCODONE [Concomitant]
  3. BELLADONNA + PHENOBARBITAL [Concomitant]
  4. COMPAZINE [Concomitant]
  5. XANAX [Concomitant]
  6. FIORINAL W/CODEINE [Concomitant]

REACTIONS (4)
  - DYSPHAGIA [None]
  - FATIGUE [None]
  - HICCUPS [None]
  - SOMNOLENCE [None]
